FAERS Safety Report 19518696 (Version 1)
Quarter: 2021Q3

REPORT INFORMATION
  Report Type: Spontaneous
  Country: US (occurrence: US)
  Receive Date: 20210710
  Receipt Date: 20210710
  Transmission Date: 20211014
  Serious: No
  Sender: FDA-Public Use
  Company Number: None

PATIENT
  Age: 54 Year
  Sex: Male
  Weight: 96.75 kg

DRUGS (6)
  1. VITAMIN D [Concomitant]
     Active Substance: VITAMIN D NOS
  2. NORVASC [Concomitant]
     Active Substance: AMLODIPINE BESYLATE
  3. MULTIVITAMIN [Concomitant]
     Active Substance: VITAMINS
  4. AZITHROMYCIN 250MG [Suspect]
     Active Substance: AZITHROMYCIN ANHYDROUS
     Indication: PHARYNGITIS STREPTOCOCCAL
     Dosage: ?          QUANTITY:1 CAPSULE(S);OTHER FREQUENCY:2 FIRST DAY, TAPER;?
     Route: 048
     Dates: start: 20210702, end: 20210702
  5. ASPIRIN LOW DOSE [Concomitant]
     Active Substance: ASPIRIN
  6. LOSARTAN POTASSIUM. [Concomitant]
     Active Substance: LOSARTAN POTASSIUM

REACTIONS (2)
  - Heart rate increased [None]
  - Chest pain [None]

NARRATIVE: CASE EVENT DATE: 20210702
